FAERS Safety Report 8454009 (Version 3)
Quarter: 2012Q4

REPORT INFORMATION
  Report Type: 
  Country: US (occurrence: US)
  Receive Date: 20120312
  Receipt Date: 20120911
  Transmission Date: 20130627
  Serious: Yes (Hospitalization)
  Sender: FDA-Public Use
  Company Number: US-BAYER-2012-023027

PATIENT
  Age: 24 Year
  Sex: Female
  Weight: 86.17 kg

DRUGS (8)
  1. YAZ [Suspect]
     Dosage: UNK
     Dates: start: 20090211, end: 20090320
  2. LEXAPRO [Concomitant]
     Indication: DEPRESSION
     Dosage: 20 mg, QD
     Route: 048
  3. NAPROXEN [Concomitant]
     Indication: PAIN
     Dosage: UNK UNK, PRN
     Route: 048
  4. ADVIL [Concomitant]
     Indication: HEADACHE
     Dosage: 1 pill every 6 hours
  5. ADVIL [Concomitant]
     Indication: PAIN
  6. IBUPROFEN [Concomitant]
     Indication: PAIN
     Dosage: 1 pill every 6 hours
  7. DAY-NIGHT QUIL [Concomitant]
     Indication: MALAISE
     Dosage: 1 pill am and pm (morning and evening)
  8. PRENATAL VITAMINS [Concomitant]
     Indication: PREGNANCY
     Dosage: 1 day [as written]

REACTIONS (7)
  - Pulmonary embolism [None]
  - Pain [None]
  - Injury [None]
  - Emotional distress [None]
  - Pain [None]
  - Physical disability [None]
  - Anxiety [None]
